FAERS Safety Report 16867259 (Version 6)
Quarter: 2020Q1

REPORT INFORMATION
  Report Type: Report from Study
  Country: AR (occurrence: AR)
  Receive Date: 20190930
  Receipt Date: 20200225
  Transmission Date: 20200409
  Serious: Yes (Hospitalization, Other)
  Sender: FDA-Public Use
  Company Number: AR-ACTELION-A-CH2019-195946

PATIENT
  Age: 33 Year
  Sex: Female
  Weight: 52 kg

DRUGS (3)
  1. UPTRAVI [Suspect]
     Active Substance: SELEXIPAG
     Indication: PULMONARY ARTERIAL HYPERTENSION
     Dosage: 800 MG, BID
     Route: 048
     Dates: start: 20190913
  2. UPTRAVI [Suspect]
     Active Substance: SELEXIPAG
     Dosage: UNK
     Route: 048
  3. OPSUMIT [Suspect]
     Active Substance: MACITENTAN
     Indication: PULMONARY ARTERIAL HYPERTENSION
     Dosage: 200 MCG, BID
     Route: 048
     Dates: start: 20161005

REACTIONS (10)
  - General physical health deterioration [Unknown]
  - Headache [Unknown]
  - Product supply issue [Unknown]
  - Feeling abnormal [Unknown]
  - Product dose omission [Unknown]
  - Malaise [Unknown]
  - Syncope [Unknown]
  - Presyncope [Unknown]
  - Underdose [Unknown]
  - Weight increased [Unknown]

NARRATIVE: CASE EVENT DATE: 20190918
